FAERS Safety Report 5528923-0 (Version None)
Quarter: 2007Q4

REPORT INFORMATION
  Report Type: 
  Country: None (occurrence: None)
  Receive Date: 20071129
  Receipt Date: 20071116
  Transmission Date: 20080405
  Serious: Yes (Other)
  Sender: FDA-Public Use
  Company Number: BR-ELI_LILLY_AND_COMPANY-BR200711003879

PATIENT
  Sex: Female

DRUGS (1)
  1. FORTEO [Suspect]
     Dosage: UNK, UNKNOWN
     Route: 065
     Dates: start: 20051101

REACTIONS (4)
  - ANAEMIA [None]
  - HAEMOCHROMATOSIS [None]
  - MONOCLONAL IMMUNOGLOBULIN PRESENT [None]
  - MULTIPLE MYELOMA [None]
